FAERS Safety Report 7868065-2 (Version None)
Quarter: 2011Q4

REPORT INFORMATION
  Report Type: 
  Country: None (occurrence: None)
  Receive Date: 20111028
  Receipt Date: 20111013
  Transmission Date: 20120403
  Serious: Yes (Life-Threatening, Hospitalization)
  Sender: FDA-Public Use
  Company Number: AU-ROCHE-726208

PATIENT
  Sex: Female
  Weight: 66.5 kg

DRUGS (3)
  1. VEMURAFENIB [Suspect]
     Indication: MALIGNANT MELANOMA
     Dosage: LAST DOSE PRIOR TO EVENT: 07 SEP 2010
     Route: 048
     Dates: start: 20100831, end: 20100908
  2. VEMURAFENIB [Suspect]
     Dosage: DOSE REDUCED.
     Route: 048
  3. ENOXAPARIN SODIUM [Concomitant]

REACTIONS (2)
  - SHOCK [None]
  - HYPOTENSION [None]
